FAERS Safety Report 9383021 (Version 2)
Quarter: 2013Q3

REPORT INFORMATION
  Report Type: Spontaneous
  Country: US (occurrence: US)
  Receive Date: 20130704
  Receipt Date: 20130824
  Transmission Date: 20140515
  Serious: No
  Sender: FDA-Public Use
  Company Number: US-009507513-1306USA013181

PATIENT
  Sex: Female
  Weight: 83.45 kg

DRUGS (4)
  1. NASONEX [Suspect]
     Indication: RHINITIS ALLERGIC
  2. OXYCODONE [Concomitant]
     Indication: BACK PAIN
     Dosage: DAILY
     Route: 048
  3. DOXYLAMINE SUCCINATE [Concomitant]
     Indication: SLEEP DISORDER
     Dosage: UNK
  4. OMEPRAZOLE [Concomitant]
     Indication: GASTRITIS
     Dosage: 20 MG, QD
     Route: 048

REACTIONS (1)
  - Exposure during pregnancy [Unknown]
